FAERS Safety Report 7595272-9 (Version None)
Quarter: 2011Q3

REPORT INFORMATION
  Report Type: 
  Country: None (occurrence: None)
  Receive Date: 20110707
  Receipt Date: 20110704
  Transmission Date: 20111222
  Serious: Yes (Other)
  Sender: FDA-Public Use
  Company Number: BR-PFIZER INC-2011088712

PATIENT
  Age: 48 Year
  Sex: Male
  Weight: 49 kg

DRUGS (4)
  1. VARENICLINE TARTRATE [Suspect]
     Dosage: 1 MG, 2X/DAY
     Route: 048
     Dates: start: 20110101
  2. LEVOTHYROXINE SODIUM [Concomitant]
     Indication: HYPERTHYROIDISM
  3. VARENICLINE TARTRATE [Suspect]
     Indication: TOBACCO USER
     Dosage: UNK, 1 TABLET DAILY
     Route: 048
     Dates: start: 20110404, end: 20110101
  4. LEVOTHYROXINE SODIUM [Concomitant]
     Indication: HYPOTHYROIDISM
     Dosage: 100 UG, 1X/DAY

REACTIONS (8)
  - ASTHENIA [None]
  - BLOOD PRESSURE DECREASED [None]
  - VISION BLURRED [None]
  - NAUSEA [None]
  - HEADACHE [None]
  - DIZZINESS [None]
  - INSOMNIA [None]
  - DECREASED APPETITE [None]
